FAERS Safety Report 22683042 (Version 3)
Quarter: 2025Q1

REPORT INFORMATION
  Report Type: Spontaneous
  Country: US (occurrence: US)
  Receive Date: 20230707
  Receipt Date: 20250307
  Transmission Date: 20250408
  Serious: No
  Sender: PFIZER
  Company Number: US-PFIZER INC-PV202300117431

PATIENT
  Age: 85 Year
  Sex: Male

DRUGS (6)
  1. VANCOMYCIN HYDROCHLORIDE [Suspect]
     Active Substance: VANCOMYCIN HYDROCHLORIDE
  2. MEDROL [Concomitant]
     Active Substance: METHYLPREDNISOLONE
     Route: 048
  3. IBRANCE [Concomitant]
     Active Substance: PALBOCICLIB
     Indication: Hormone receptor positive HER2 negative breast cancer
     Route: 048
     Dates: start: 202306
  4. IBRANCE [Concomitant]
     Active Substance: PALBOCICLIB
     Indication: Breast cancer
  5. IBRANCE [Concomitant]
     Active Substance: PALBOCICLIB
     Indication: Malignant nipple neoplasm male
  6. IBRANCE [Concomitant]
     Active Substance: PALBOCICLIB
     Indication: Metastases to bone

REACTIONS (3)
  - Drug hypersensitivity [Unknown]
  - Erythema [Unknown]
  - Pruritus [Unknown]
